FAERS Safety Report 4839219-4 (Version None)
Quarter: 2005Q4

REPORT INFORMATION
  Report Type: 
  Country: None (occurrence: None)
  Receive Date: 20051129
  Receipt Date: 20050224
  Transmission Date: 20060501
  Serious: Yes (Hospitalization)
  Sender: FDA-Public Use
  Company Number: US-BRISTOL-MYERS SQUIBB COMPANY-12877502

PATIENT
  Age: 80 Year
  Sex: Female

DRUGS (28)
  1. CETUXIMAB [Suspect]
     Indication: NON-SMALL CELL LUNG CANCER
     Dosage: THERAPY STOP DATE 11-MAR-05.
     Route: 042
     Dates: start: 20050211, end: 20050211
  2. CARBOPLATIN [Suspect]
     Indication: NON-SMALL CELL LUNG CANCER
     Dosage: STOPPED 11-MAR-05.
     Route: 042
     Dates: start: 20050218, end: 20050218
  3. PACLITAXEL [Suspect]
     Indication: NON-SMALL CELL LUNG CANCER
     Dosage: STOPPED 11-MAR-05.
     Route: 042
     Dates: start: 20050218, end: 20050218
  4. COUMADIN [Concomitant]
     Dosage: 3 MG/DAY EXCEPT ON MON AND FRI (6 MG/DAY)
  5. PROTONIX [Concomitant]
     Route: 048
  6. REGLAN [Concomitant]
     Dosage: 5 MG TID  A.C (BEFORE MEALS) AND Q HS (AT BEDTIME).
     Route: 048
  7. NOVOLIN N [Concomitant]
     Dosage: USUAL: 20 UNITS WITH BREASFAST + SLIDING SCALE
  8. HUMALOG [Concomitant]
     Dosage: NPH HUMALOG
  9. FORADIL [Concomitant]
  10. OXYGEN [Concomitant]
     Dosage: 2 LITERS AT NIGHT
  11. PULMICORT [Concomitant]
     Dosage: DOSAGE FORM = 1 PUFF. TAKES 2 PUFFS TWICE PER DAY
  12. LASIX [Concomitant]
  13. DEMADEX [Concomitant]
  14. HUMIBID DM [Concomitant]
     Route: 048
  15. ANTIVERT [Concomitant]
     Route: 048
  16. POTASSIUM [Concomitant]
     Route: 048
  17. ZOCOR [Concomitant]
     Route: 048
  18. PREDNISONE [Concomitant]
     Dosage: 1/2 TAB EVERY DAY, INCREASED TO 30 MG ON 24-FEB-05.
     Route: 048
  19. ATIVAN [Concomitant]
     Dosage: 0.5 MG EVERY 8 HOURS AS NEEDED
     Route: 048
  20. NORVASC [Concomitant]
     Route: 048
  21. DIGOXIN [Concomitant]
     Route: 048
  22. COLACE [Concomitant]
     Route: 048
  23. RESTORIL [Concomitant]
     Dosage: 15 MG Q PM
     Route: 048
  24. ZYRTEC [Concomitant]
     Route: 048
  25. IMMUNE GLOBULIN INTRAVENOUS (HUMAN) [Concomitant]
  26. VITAMIN E [Concomitant]
  27. ASCORBIC ACID [Concomitant]
  28. MULTI-VITAMINS [Concomitant]

REACTIONS (3)
  - DYSPNOEA [None]
  - HYPOXIA [None]
  - RESPIRATORY FAILURE [None]
